FAERS Safety Report 7863777-9 (Version None)
Quarter: 2011Q4

REPORT INFORMATION
  Report Type: 
  Country: None (occurrence: None)
  Receive Date: 20111028
  Receipt Date: 20111013
  Transmission Date: 20120403
  Serious: Yes (Other)
  Sender: FDA-Public Use
  Company Number: CO-AMGEN-COLSP2010006886

PATIENT
  Age: 49 Year
  Sex: Male

DRUGS (11)
  1. ENALAPRIL MALEATE [Concomitant]
     Indication: HYPERTENSION
     Dosage: 40 MG, 1X/DAY
     Dates: start: 20070101
  2. OMEPRAZOLE [Concomitant]
     Indication: GASTRIC DISORDER
     Dosage: 20 MG, 1X/DAY
  3. SULFASALAZINE [Concomitant]
     Indication: RHEUMATOID ARTHRITIS
     Dosage: 1000 MG, 1X/DAY
     Dates: start: 20090925
  4. HYDROCHLOROTHIAZID [Concomitant]
     Dosage: UNK
  5. OMEPRAZOLE [Concomitant]
     Indication: LIVER DISORDER
  6. ACETAMINOPHEN [Concomitant]
     Indication: PAIN
     Dosage: 500 MG, AS NEEDED
  7. ENBREL [Suspect]
     Dosage: 50 UNK, QWK
     Route: 058
     Dates: start: 20110101
  8. ENBREL [Suspect]
     Indication: RHEUMATOID ARTHRITIS
     Dosage: 50 MG, WEEKLY
     Route: 058
     Dates: start: 20100901
  9. ARAVA [Concomitant]
     Indication: RHEUMATOID ARTHRITIS
     Dosage: 20 MG, 1X/DAY
     Dates: start: 20100701
  10. PREDNISOLONE [Concomitant]
     Indication: IMMUNOMODULATORY THERAPY
     Dosage: 5 MG, 1X/DAY
     Dates: start: 20030101
  11. PREDNISOLONE [Concomitant]
     Indication: RHEUMATOID ARTHRITIS
     Dosage: 10 MG, 1X/DAY
     Dates: start: 20071010

REACTIONS (10)
  - OCULAR HYPERAEMIA [None]
  - INJECTION SITE IRRITATION [None]
  - ABNORMAL SENSATION IN EYE [None]
  - INJECTION SITE INDURATION [None]
  - INJECTION SITE INFLAMMATION [None]
  - BRONCHITIS [None]
  - INJECTION SITE ERYTHEMA [None]
  - DRY EYE [None]
  - EYE IRRITATION [None]
  - PYREXIA [None]
